FAERS Safety Report 4307072-3 (Version None)
Quarter: 2004Q1

REPORT INFORMATION
  Report Type: 
  Country: None (occurrence: None)
  Receive Date: 20040225
  Receipt Date: 20040210
  Transmission Date: 20041129
  Serious: Yes (Death, Hospitalization)
  Sender: FDA-Public Use
  Company Number: US_0402100645

PATIENT
  Age: 67 Year
  Sex: Male

DRUGS (7)
  1. DROTRECOGIN ALFA (ACTIVATED) [Suspect]
     Indication: RESPIRATORY DISORDER
     Dates: start: 20040115
  2. DROTRECOGIN ALFA (ACTIVATED) [Suspect]
     Indication: SEPTIC SHOCK
     Dates: start: 20040115
  3. NOREDRENALINE [Concomitant]
  4. ALBUMIN (HUMAN) [Concomitant]
  5. FUROSEMIDE [Concomitant]
  6. VANCOMYCIN [Concomitant]
  7. PIPERACILLIN SODIUM W/TAZOBACTAM SODIUM [Concomitant]

REACTIONS (12)
  - ACINETOBACTER INFECTION [None]
  - ACTIVATED PARTIAL THROMBOPLASTIN TIME PROLONGED [None]
  - CANDIDIASIS [None]
  - HAEMODIALYSIS [None]
  - HAEMORRHAGE [None]
  - HYPOTENSION [None]
  - KIDNEY INFECTION [None]
  - PULMONARY HAEMORRHAGE [None]
  - RENAL IMPAIRMENT [None]
  - RESPIRATORY DISORDER [None]
  - RESPIRATORY TRACT INFECTION [None]
  - THROMBOSIS [None]
